FAERS Safety Report 8808844 (Version 1)
Quarter: 2012Q4

REPORT INFORMATION
  Report Type: Spontaneous
  Country: US (occurrence: None)
  Receive Date: 20120921
  Receipt Date: 20120921
  Transmission Date: 20130627
  Serious: Yes (Life-Threatening, Hospitalization)
  Sender: FDA-Public Use
  Company Number: None

PATIENT
  Sex: Male
  Weight: 120.9 kg

DRUGS (3)
  1. VANCOMYCIN [Suspect]
     Indication: CELLULITIS
     Route: 042
     Dates: start: 20120816, end: 20120816
  2. AMOXICILLIN CLAVULANATE [Suspect]
     Route: 048
     Dates: start: 20120810, end: 20120817
  3. AMOXICILLIN CLAVULANATE [Suspect]

REACTIONS (4)
  - Anaphylactoid reaction [None]
  - Swollen tongue [None]
  - Eye swelling [None]
  - Anaphylactic reaction [None]
